FAERS Safety Report 6541141-2 (Version None)
Quarter: 2010Q1

REPORT INFORMATION
  Report Type: 
  Country: None (occurrence: None)
  Receive Date: 20100118
  Receipt Date: 20100114
  Transmission Date: 20100710
  Serious: Yes (Hospitalization, Congenital Anomaly)
  Sender: FDA-Public Use
  Company Number: A0688758A

PATIENT
  Sex: Male
  Weight: 2.8 kg

DRUGS (4)
  1. PAXIL [Suspect]
     Indication: ANXIETY
     Dosage: 20MG PER DAY
     Dates: start: 20031026, end: 20031125
  2. PAROXETINE HCL [Suspect]
     Indication: ANXIETY
     Dosage: 20MG PER DAY
     Dates: start: 20040505, end: 20040812
  3. SYNTHROID [Concomitant]
     Indication: THYROID DISORDER
     Dates: start: 20020101
  4. MULTI-VITAMINS [Concomitant]
     Dates: start: 20031001

REACTIONS (15)
  - ABASIA [None]
  - ANAL ATRESIA [None]
  - APHASIA [None]
  - ARNOLD-CHIARI MALFORMATION [None]
  - CONGENITAL HIP DEFORMITY [None]
  - CONGENITAL SCOLIOSIS [None]
  - CRYPTORCHISM [None]
  - DRUG EXPOSURE DURING PREGNANCY [None]
  - EYELID PTOSIS [None]
  - GENITALIA EXTERNAL AMBIGUOUS [None]
  - HYPOSPADIAS [None]
  - INFERTILITY MALE [None]
  - NEURAL TUBE DEFECT [None]
  - SPINA BIFIDA [None]
  - SPINE MALFORMATION [None]
